FAERS Safety Report 22884928 (Version 4)
Quarter: 2023Q4

REPORT INFORMATION
  Report Type: Report from Study
  Country: FR (occurrence: FR)
  Receive Date: 20230830
  Receipt Date: 20231016
  Transmission Date: 20240110
  Serious: Yes (Hospitalization)
  Sender: FDA-Public Use
  Company Number: FR-PFIZER INC-202300261308

PATIENT
  Age: 65 Year
  Sex: Male
  Weight: 82 kg

DRUGS (15)
  1. ELRANATAMAB [Suspect]
     Active Substance: ELRANATAMAB
     Indication: Plasma cell myeloma
     Dosage: 12 MG, ONCE
     Route: 058
     Dates: start: 20221024, end: 20221024
  2. ELRANATAMAB [Suspect]
     Active Substance: ELRANATAMAB
     Dosage: 32 MG, ONCE
     Route: 058
     Dates: start: 20221027, end: 20221027
  3. ELRANATAMAB [Suspect]
     Active Substance: ELRANATAMAB
     Dosage: 76 MG, EVERY 2 WEEKS
     Route: 058
     Dates: start: 20221031, end: 20221123
  4. ELRANATAMAB [Suspect]
     Active Substance: ELRANATAMAB
     Dosage: 76 MG, EVERY WEEK
     Route: 058
     Dates: start: 20221228, end: 20230209
  5. ELRANATAMAB [Suspect]
     Active Substance: ELRANATAMAB
     Dosage: 32 MG, EVERY 2 WEEK
     Route: 058
     Dates: start: 20230531, end: 20230531
  6. ELRANATAMAB [Suspect]
     Active Substance: ELRANATAMAB
     Dosage: 76 MG, EVERY 2 WEEKS
     Route: 058
     Dates: start: 20230614, end: 20230627
  7. DARATUMUMAB [Suspect]
     Active Substance: DARATUMUMAB
     Indication: Plasma cell myeloma
     Dosage: 1800 MG, EVERY WEEK
     Route: 058
     Dates: start: 20221108, end: 20221123
  8. DARATUMUMAB [Suspect]
     Active Substance: DARATUMUMAB
     Dosage: 1800 MG, EVERY WEEK
     Route: 058
     Dates: start: 20221228, end: 20230104
  9. DARATUMUMAB [Suspect]
     Active Substance: DARATUMUMAB
     Dosage: 1800 MG, EVERY 2 WEEKS
     Route: 058
     Dates: start: 20230118, end: 20230202
  10. DARATUMUMAB [Suspect]
     Active Substance: DARATUMUMAB
     Dosage: 1800 MG, EVERY 4 WEEKS
     Route: 058
     Dates: start: 20230614, end: 20230614
  11. PRAVASTATIN [Concomitant]
     Active Substance: PRAVASTATIN
     Indication: Hypercholesterolaemia
     Dosage: 20 MG, 2X/DAY
     Route: 048
     Dates: start: 20230721
  12. REPAGLINIDE [Concomitant]
     Active Substance: REPAGLINIDE
     Indication: Type 2 diabetes mellitus
     Dosage: 1 MG, 3X/DAY
     Route: 048
     Dates: start: 20221024
  13. TRESIBA [Concomitant]
     Active Substance: INSULIN DEGLUDEC
     Indication: Type 2 diabetes mellitus
     Dosage: 22 IU, 1X/DAY
     Route: 042
     Dates: start: 20230721
  14. METFORMIN HYDROCHLORIDE [Concomitant]
     Active Substance: METFORMIN HYDROCHLORIDE
     Indication: Type 2 diabetes mellitus
     Dosage: 700 MG, 3X/DAY
     Route: 042
     Dates: start: 20230302
  15. HUMALOG [Concomitant]
     Active Substance: INSULIN LISPRO
     Indication: Type 2 diabetes mellitus
     Dosage: 4 IU, 1X/DAY
     Route: 042
     Dates: start: 20221129

REACTIONS (1)
  - Pneumonia adenoviral [Recovered/Resolved]

NARRATIVE: CASE EVENT DATE: 20230725
